FAERS Safety Report 21147503 (Version 1)
Quarter: 2022Q3

REPORT INFORMATION
  Report Type: Spontaneous
  Country: US (occurrence: None)
  Receive Date: 20220728
  Receipt Date: 20220728
  Transmission Date: 20221026
  Serious: Yes (Death)
  Sender: FDA-Public Use
  Company Number: None

PATIENT
  Age: 77 Year
  Sex: Male

DRUGS (1)
  1. WARFARIN [Suspect]
     Active Substance: WARFARIN

REACTIONS (6)
  - Fall [None]
  - Subdural haematoma [None]
  - Subarachnoid haematoma [None]
  - Mental status changes [None]
  - Haemorrhage intracranial [None]
  - Palliative care [None]

NARRATIVE: CASE EVENT DATE: 20220312
